FAERS Safety Report 19096096 (Version 2)
Quarter: 2021Q3

REPORT INFORMATION
  Report Type: Spontaneous
  Country: JP (occurrence: JP)
  Receive Date: 20210406
  Receipt Date: 20210714
  Transmission Date: 20211014
  Serious: No
  Sender: FDA-Public Use
  Company Number: JP-NOVOPROD-796328

PATIENT
  Age: 18 Year
  Sex: Female
  Weight: 36 kg

DRUGS (1)
  1. VICTOZA [Suspect]
     Active Substance: LIRAGLUTIDE
     Indication: WEIGHT CONTROL
     Dosage: 0.90 MG, QD
     Route: 058
     Dates: start: 202008, end: 202009

REACTIONS (3)
  - Physical deconditioning [Unknown]
  - Off label use [Unknown]
  - Mental disorder [Unknown]

NARRATIVE: CASE EVENT DATE: 202008
